FAERS Safety Report 9696645 (Version 1)
Quarter: 2013Q4

REPORT INFORMATION
  Report Type: Spontaneous
  Country: US (occurrence: US)
  Receive Date: 20131119
  Receipt Date: 20131119
  Transmission Date: 20140711
  Serious: No
  Sender: FDA-Public Use
  Company Number: US-009507513-1310USA013344

PATIENT
  Age: 20 Year
  Sex: Female

DRUGS (1)
  1. NEXPLANON [Suspect]
     Indication: MENSTRUAL DISORDER
     Dosage: 1 ROD FOR 3 YEARS
     Route: 059
     Dates: start: 20130603

REACTIONS (2)
  - Metrorrhagia [Not Recovered/Not Resolved]
  - Nausea [Unknown]
